FAERS Safety Report 4377076-3 (Version None)
Quarter: 2004Q2

REPORT INFORMATION
  Report Type: 
  Country: None (occurrence: None)
  Receive Date: 20040614
  Receipt Date: 20040603
  Transmission Date: 20050107
  Serious: Yes (Other)
  Sender: FDA-Public Use
  Company Number: US-BRISTOL-MYERS SQUIBB COMPANY-12604997

PATIENT
  Age: 54 Year
  Sex: Male
  Weight: 95 kg

DRUGS (1)
  1. KENALOG-10 [Suspect]
     Indication: ALOPECIA AREATA
     Dosage: 1/2 TO 1 CC AT 1 P.M.
     Route: 023
     Dates: start: 20040602

REACTIONS (1)
  - ANAPHYLACTIC SHOCK [None]
